FAERS Safety Report 4398824-2 (Version None)
Quarter: 2004Q3

REPORT INFORMATION
  Report Type: 
  Country: None (occurrence: None)
  Receive Date: 20040712
  Receipt Date: 20020227
  Transmission Date: 20050211
  Serious: Yes (Hospitalization)
  Sender: FDA-Public Use
  Company Number: HQ1050228FEB2002

PATIENT
  Age: 67 Year
  Sex: Female

DRUGS (6)
  1. ARTANE (TRIHEXYPHENIDYL) [Suspect]
     Indication: PARKINSON'S DISEASE
     Dosage: 6 MG 1X PER 1 DAY, ORAL
     Route: 048
     Dates: start: 19980206
  2. EX DOPARL (BENSERAZIDE HYDROCHLORIDE/LEVODOPA, ) [Suspect]
     Indication: PARKINSON'S DISEASE
     Dosage: DAILY, ORAL
     Route: 048
     Dates: start: 19980206
  3. FLUVOXAMINE MALEATE [Suspect]
     Indication: DEPRESSION
     Dosage: 50 MG 1X PER 1 DAY, ORAL
     Route: 048
     Dates: start: 20000502, end: 20000503
  4. PERMAX [Suspect]
     Indication: PARKINSON'S DISEASE
     Dosage: 150 MG 1X PER 1 DAY, ORAL
     Route: 048
     Dates: start: 19980206
  5. PLETAL [Concomitant]
  6. MARZULENE (SODIUM GUALENATE) [Concomitant]

REACTIONS (17)
  - ALANINE AMINOTRANSFERASE INCREASED [None]
  - ASPARTATE AMINOTRANSFERASE INCREASED [None]
  - BLOOD CREATINE PHOSPHOKINASE INCREASED [None]
  - BLOOD LACTATE DEHYDROGENASE INCREASED [None]
  - BLOOD OSMOLARITY DECREASED [None]
  - C-REACTIVE PROTEIN INCREASED [None]
  - DIARRHOEA [None]
  - FEELING ABNORMAL [None]
  - HYPONATRAEMIA [None]
  - INAPPROPRIATE ANTIDIURETIC HORMONE SECRETION [None]
  - MUSCLE RIGIDITY [None]
  - SEROTONIN SYNDROME [None]
  - THIRST [None]
  - URINARY TRACT INFECTION [None]
  - URINE OSMOLARITY INCREASED [None]
  - URINE SODIUM INCREASED [None]
  - VOMITING [None]
